FAERS Safety Report 7402292-3 (Version None)
Quarter: 2011Q2

REPORT INFORMATION
  Report Type: 
  Country: None (occurrence: None)
  Receive Date: 20110408
  Receipt Date: 20110329
  Transmission Date: 20111010
  Serious: Yes (Disabling, Other)
  Sender: FDA-Public Use
  Company Number: US-US-EMD SERONO, INC.-7047147

PATIENT
  Sex: Female

DRUGS (1)
  1. REBIF [Suspect]
     Indication: PRODUCT USED FOR UNKNOWN INDICATION
     Route: 058
     Dates: start: 20100609, end: 20110301

REACTIONS (4)
  - CENTRAL NERVOUS SYSTEM LESION [None]
  - VISUAL FIELD DEFECT [None]
  - BLINDNESS UNILATERAL [None]
  - VISION BLURRED [None]
